FAERS Safety Report 6640497-X (Version None)
Quarter: 2010Q1

REPORT INFORMATION
  Report Type: 
  Country: None (occurrence: None)
  Receive Date: 20100318
  Receipt Date: 20100308
  Transmission Date: 20100710
  Serious: Yes (Other)
  Sender: FDA-Public Use
  Company Number: PT-BAYER-201017539GPV

PATIENT
  Sex: Female

DRUGS (2)
  1. MIRENA [Suspect]
     Indication: CONTRACEPTION
     Route: 015
     Dates: start: 20090706
  2. NATURAL PRODUCTS [Concomitant]
     Indication: WEIGHT CONTROL
     Dosage: TABLETS AND TEA
     Dates: start: 20091201

REACTIONS (2)
  - HAEMANGIOMA OF LIVER [None]
  - LIVER FUNCTION TEST ABNORMAL [None]
